FAERS Safety Report 9853657 (Version 23)
Quarter: 2015Q1

REPORT INFORMATION
  Report Type: Spontaneous
  Country: JP (occurrence: JP)
  Receive Date: 20140129
  Receipt Date: 20150318
  Transmission Date: 20150721
  Serious: Yes (Other)
  Sender: FDA-Public Use
  Company Number: JP-PFIZER INC-2013280046

PATIENT
  Age: 88 Year
  Sex: Male

DRUGS (19)
  1. LYRICA [Suspect]
     Active Substance: PREGABALIN
     Dosage: 100 MG, 3X25MG IN THE MORNING AND 25MG IN THE EVENING
     Route: 048
     Dates: start: 20131028, end: 20131028
  2. LYRICA [Suspect]
     Active Substance: PREGABALIN
     Dosage: 3 DF (3 CAPSULES IN THE MORNING)
     Dates: start: 20140507
  3. METHYCOOL CHEMIPHAR [Suspect]
     Active Substance: METHYLCOBALAMIN
     Dosage: UNK
     Dates: start: 20140521
  4. NEUROTROPIN [Concomitant]
     Active Substance: NEUROTROPIN
  5. LYRICA [Suspect]
     Active Substance: PREGABALIN
     Dosage: 50 MG, (2 CAP AT MORNING)
     Route: 048
     Dates: start: 20131030, end: 20140110
  6. LYRICA [Suspect]
     Active Substance: PREGABALIN
     Dosage: 25 MG, 3X/DAY
     Dates: start: 20140409
  7. LYRICA [Suspect]
     Active Substance: PREGABALIN
     Dosage: 75MG; 25 MG AT NOON AND 50MG IN THE EVENING
     Route: 048
     Dates: start: 20131029, end: 20131029
  8. LYRICA [Suspect]
     Active Substance: PREGABALIN
     Dosage: 50 MG, 3X/DAY (TOOK 2 CAPSULES AT 7:00 AND AFTER TOOK ONE MORE CAPSULE)
     Route: 048
     Dates: start: 20140111, end: 20140114
  9. LYRICA [Suspect]
     Active Substance: PREGABALIN
     Dosage: 6 DF (3 CAPSULES IN THE MORNING, 1 CAUSULE AT NOON AND 2 CAPSULES IN THE EVENING)
     Dates: start: 20140502, end: 20140506
  10. LOXOPROFEN SODIUM [Concomitant]
     Active Substance: LOXOPROFEN SODIUM
  11. LYRICA [Suspect]
     Active Substance: PREGABALIN
     Dosage: 150 MG (50MG, X3/DAY, IN MORNING, AFTERNOON AND EVENING)
     Dates: start: 201401
  12. VOLTAREN [Concomitant]
     Active Substance: DICLOFENAC SODIUM
     Dosage: UNK
  13. LYRICA [Suspect]
     Active Substance: PREGABALIN
     Dosage: 6 CAPSULES/ DAY (2 CAPSULES X 3/DAY, IN THE MORNING, NOON AND EVENING)
     Dates: start: 20140430
  14. LYRICA [Suspect]
     Active Substance: PREGABALIN
     Indication: MUSCULAR WEAKNESS
     Dosage: 25 MG, DAILY
     Route: 048
     Dates: start: 20130913, end: 20130925
  15. LYRICA [Suspect]
     Active Substance: PREGABALIN
     Dosage: 7 CAPSULES/DAY (2 CAPSULES IN THE MORNING AND NOON, 3 CAPSULES IN THE EVENING)
     Dates: start: 20140501
  16. LYRICA [Suspect]
     Active Substance: PREGABALIN
     Dosage: 7 DF PER DAY (3 CAPSULES IN THE MORNING, 1 AT NOON, AND 3 IN THE EVENING)
     Route: 048
  17. LYRICA [Suspect]
     Active Substance: PREGABALIN
     Indication: SPINAL COLUMN STENOSIS
     Dosage: 25 MG, 2X/DAY
     Route: 048
     Dates: start: 20130926, end: 20131027
  18. LYRICA [Suspect]
     Active Substance: PREGABALIN
     Dosage: 50 MG, 3X/DAY
  19. LYRICA [Suspect]
     Active Substance: PREGABALIN
     Dosage: 50 MG, 3X/DAY
     Route: 048

REACTIONS (21)
  - Myalgia [Unknown]
  - Muscle tightness [Unknown]
  - Fall [Unknown]
  - Dizziness [Unknown]
  - Dizziness [Unknown]
  - Pain [Not Recovered/Not Resolved]
  - Nausea [Unknown]
  - Gait disturbance [Not Recovered/Not Resolved]
  - Head discomfort [Unknown]
  - Drug ineffective [Not Recovered/Not Resolved]
  - Abasia [Unknown]
  - Limb discomfort [Unknown]
  - Oedema peripheral [Unknown]
  - Headache [Unknown]
  - Feeling abnormal [Unknown]
  - Hypokinesia [Unknown]
  - Hypoaesthesia [Unknown]
  - Arthralgia [Unknown]
  - Pain in extremity [Unknown]
  - Malaise [Unknown]
  - Muscular weakness [Not Recovered/Not Resolved]

NARRATIVE: CASE EVENT DATE: 201309
